FAERS Safety Report 6280386-6 (Version None)
Quarter: 2009Q3

REPORT INFORMATION
  Report Type: 
  Country: None (occurrence: None)
  Receive Date: 20090724
  Receipt Date: 20090713
  Transmission Date: 20100115
  Serious: Yes (Hospitalization)
  Sender: FDA-Public Use
  Company Number: DE-PFIZER INC-2009232711

PATIENT
  Age: 59 Year

DRUGS (3)
  1. BLINDED *NO SUBJECT DRUG [Suspect]
     Indication: RENAL CANCER
     Dosage: 50 MG, UNK
     Route: 048
     Dates: start: 20090506
  2. BLINDED *PLACEBO [Suspect]
     Indication: RENAL CANCER
     Dosage: 50 MG, UNK
     Route: 048
     Dates: start: 20090506
  3. BLINDED SUNITINIB MALATE [Suspect]
     Indication: RENAL CANCER
     Dosage: 50 MG, UNK
     Route: 048
     Dates: start: 20090506

REACTIONS (1)
  - AGITATED DEPRESSION [None]
